FAERS Safety Report 9171889 (Version 4)
Quarter: 2014Q2

REPORT INFORMATION
  Report Type: Report from Study
  Country: BR (occurrence: BR)
  Receive Date: 20130319
  Receipt Date: 20140626
  Transmission Date: 20141212
  Serious: Yes (Death, Hospitalization, Other)
  Sender: FDA-Public Use
  Company Number: PHHY2013BR025585

PATIENT
  Age: 75 Year
  Sex: Female
  Weight: 49 kg

DRUGS (2)
  1. ACLASTA [Suspect]
     Indication: OSTEOPOROSIS
     Dosage: 1 DF, ONCE PER YEAR
     Route: 042
     Dates: start: 201303
  2. MIACALCIN (CALCITONIN  SALMON) [Suspect]
     Indication: HIP FRACTURE
     Dosage: UNK
     Dates: start: 201212, end: 201301

REACTIONS (16)
  - Acute pulmonary oedema [Fatal]
  - Cardiac failure [Fatal]
  - Blood pressure increased [Fatal]
  - Arrhythmia [Not Recovered/Not Resolved]
  - Pneumonia [Recovering/Resolving]
  - Lung infiltration [Recovering/Resolving]
  - Respiration abnormal [Recovering/Resolving]
  - Dyspnoea [Recovering/Resolving]
  - Cough [Recovering/Resolving]
  - Malaise [Recovering/Resolving]
  - Bone pain [Recovering/Resolving]
  - Tachycardia [Recovering/Resolving]
  - General physical health deterioration [Recovering/Resolving]
  - Procedural complication [Recovering/Resolving]
  - Poor venous access [Unknown]
  - Drug administration error [Unknown]
